FAERS Safety Report 6619208-X (Version None)
Quarter: 2010Q1

REPORT INFORMATION
  Report Type: 
  Country: None (occurrence: None)
  Receive Date: 20100302
  Receipt Date: 20100212
  Transmission Date: 20100710
  Serious: Yes (Life-Threatening, Hospitalization, Other)
  Sender: FDA-Public Use
  Company Number: BVT-000478

PATIENT
  Age: 16 Year
  Sex: Female
  Weight: 59.8748 kg

DRUGS (3)
  1. KINERET [Suspect]
     Indication: JUVENILE ARTHRITIS
     Dosage: 100 MG QD FOR 6 WEEKS SUBCUTANEOUS
     Route: 058
     Dates: start: 20090901
  2. PREDNISONE [Concomitant]
  3. METHOTREXATE [Concomitant]

REACTIONS (15)
  - ANAEMIA [None]
  - BONE MARROW FAILURE [None]
  - CONDITION AGGRAVATED [None]
  - CONVULSION [None]
  - DIALYSIS [None]
  - GENERAL PHYSICAL HEALTH DETERIORATION [None]
  - HEPATIC FAILURE [None]
  - HISTIOCYTOSIS HAEMATOPHAGIC [None]
  - INJECTION SITE NECROSIS [None]
  - INJECTION SITE PAIN [None]
  - JUVENILE ARTHRITIS [None]
  - LUNG INFILTRATION [None]
  - PYREXIA [None]
  - RASH [None]
  - RENAL FAILURE [None]
